FAERS Safety Report 16556973 (Version 2)
Quarter: 2019Q3

REPORT INFORMATION
  Report Type: Spontaneous
  Country: JP (occurrence: JP)
  Receive Date: 20190711
  Receipt Date: 20190918
  Transmission Date: 20191004
  Serious: Yes (Hospitalization)
  Sender: FDA-Public Use
  Company Number: JP-BAYER-2019-128130

PATIENT
  Age: 36 Year
  Sex: Male
  Weight: 88.4 kg

DRUGS (15)
  1. XOFLUZA [Suspect]
     Active Substance: BALOXAVIR MARBOXIL
     Indication: INFLUENZA
     Dosage: 20 MG, QD (ALSO REPORTED AS 40 MG, QD)
     Route: 048
     Dates: start: 20190212, end: 20190212
  2. DIAZEPAM. [Suspect]
     Active Substance: DIAZEPAM
     Dosage: UNK
     Dates: start: 20180105
  3. RISPERIDONE. [Suspect]
     Active Substance: RISPERIDONE
     Dosage: DAILY DOSE 5 MG
     Route: 048
     Dates: start: 20180417, end: 20190221
  4. RISPERIDONE. [Suspect]
     Active Substance: RISPERIDONE
     Dosage: DAILY DOSE 4 MG
     Route: 048
     Dates: start: 20190222
  5. QUETIAPINE. [Suspect]
     Active Substance: QUETIAPINE
     Dosage: 400 MG, QD
     Route: 048
     Dates: start: 20141008, end: 20190222
  6. CLARITIN [Suspect]
     Active Substance: LORATADINE
     Indication: RHINORRHOEA
     Dosage: 10 MG, QD
     Route: 048
     Dates: start: 20190212
  7. CALONAL [Concomitant]
     Active Substance: ACETAMINOPHEN
     Indication: PYREXIA
     Dosage: 400 MG, PRN
     Route: 048
     Dates: start: 20190212
  8. RISPERIDONE. [Suspect]
     Active Substance: RISPERIDONE
     Dosage: 2 MG, BID
     Route: 048
     Dates: start: 20131224
  9. QUETIAPINE. [Suspect]
     Active Substance: QUETIAPINE
     Dosage: UNK
     Route: 048
     Dates: start: 20190417
  10. NITRAZEPAM [Suspect]
     Active Substance: NITRAZEPAM
     Dosage: 10 MG, QD
     Route: 048
     Dates: start: 20050517
  11. MEDICON [DEXTROMETHORPHAN HYDROBROMIDE] [Suspect]
     Active Substance: DEXTROMETHORPHAN HYDROBROMIDE
     Indication: COUGH
     Dosage: 30 MG, TID (ALSO REPORTED AS 45 MG DAILY FOR 5 DAYS)
     Route: 048
     Dates: start: 20190212
  12. ZOPICLONE [Suspect]
     Active Substance: ZOPICLONE
     Dosage: UNK
     Route: 048
     Dates: start: 20180417
  13. DIAZEPAM. [Suspect]
     Active Substance: DIAZEPAM
     Dosage: 5 MG, BID
     Route: 048
     Dates: start: 20180417
  14. NITRAZEPAM [Suspect]
     Active Substance: NITRAZEPAM
     Dosage: UNK
     Route: 048
     Dates: start: 20180417
  15. ZOPICLONE [Suspect]
     Active Substance: ZOPICLONE
     Dosage: 7.5 MG, QD
     Route: 048
     Dates: start: 20111011

REACTIONS (24)
  - Cough [None]
  - Hyperhidrosis [Recovered/Resolved]
  - Memory impairment [Recovered/Resolved]
  - Asthenia [Recovered/Resolved]
  - Tremor [Recovered/Resolved]
  - Rhabdomyolysis [Recovered/Resolved]
  - Neuroleptic malignant syndrome [Recovered/Resolved]
  - Blood creatinine increased [Recovered/Resolved]
  - Blood urea increased [Recovered/Resolved]
  - Blood creatine phosphokinase increased [Recovered/Resolved]
  - Disorganised speech [Recovered/Resolved]
  - Product use in unapproved indication [None]
  - Myoglobinuria [Recovered/Resolved]
  - Sputum retention [None]
  - Insomnia [None]
  - Bradykinesia [Recovered/Resolved]
  - Feeding disorder [Recovered/Resolved]
  - Communication disorder [Recovered/Resolved]
  - Delirium [Recovered/Resolved]
  - Disorientation [Recovered/Resolved]
  - Dysuria [None]
  - Haematuria [Recovered/Resolved]
  - Off label use [None]
  - Behaviour disorder [Recovered/Resolved]

NARRATIVE: CASE EVENT DATE: 20190212
